FAERS Safety Report 9463596 (Version 1)
Quarter: 2013Q3

REPORT INFORMATION
  Report Type: Spontaneous
  Country: US (occurrence: None)
  Receive Date: 20130815
  Receipt Date: 20130815
  Transmission Date: 20140515
  Serious: No
  Sender: FDA-Public Use
  Company Number: None

PATIENT
  Age: 57 Year
  Sex: Male

DRUGS (1)
  1. HUMIRA [Suspect]
     Indication: CROHN^S DISEASE
     Dosage: 160MG DAY 1, 80MG DAY 15  DAY 1 AND DAY 15  SUBQ
     Route: 058
     Dates: start: 20130503, end: 20130729

REACTIONS (1)
  - Unevaluable event [None]
